FAERS Safety Report 12760622 (Version 1)
Quarter: 2016Q3

REPORT INFORMATION
  Report Type: Report from Study
  Country: US (occurrence: US)
  Receive Date: 20160919
  Receipt Date: 20160919
  Transmission Date: 20161109
  Serious: Yes (Hospitalization, Other)
  Sender: FDA-Public Use
  Company Number: US-ABBVIE-09P-163-0591513-00

PATIENT
  Age: 44 Year
  Sex: Female

DRUGS (2)
  1. HUMIRA [Suspect]
     Active Substance: ADALIMUMAB
     Indication: PSORIATIC ARTHROPATHY
     Route: 058
     Dates: start: 20160706
  2. HUMIRA [Suspect]
     Active Substance: ADALIMUMAB
     Indication: PSORIASIS
     Dosage: (80 MG DAY 1)
     Route: 058
     Dates: start: 200906, end: 200906

REACTIONS (20)
  - Skin haemorrhage [Recovered/Resolved]
  - Chills [Recovered/Resolved]
  - Diarrhoea [Recovered/Resolved]
  - Infection [Recovered/Resolved]
  - Blood calcium decreased [Unknown]
  - Joint swelling [Unknown]
  - Hyperparathyroidism [Unknown]
  - Viral infection [Recovered/Resolved]
  - Pyrexia [Recovered/Resolved]
  - Hypoparathyroidism [Recovered/Resolved]
  - Psoriasis [Recovering/Resolving]
  - Vomiting [Recovered/Resolved]
  - Muscle strain [Recovered/Resolved]
  - Drug dose omission [Not Recovered/Not Resolved]
  - Drug effect incomplete [Unknown]
  - Skin exfoliation [Unknown]
  - Memory impairment [Unknown]
  - Finger deformity [Unknown]
  - Calcium metabolism disorder [Recovered/Resolved]
  - Peripheral swelling [Unknown]

NARRATIVE: CASE EVENT DATE: 200907
